FAERS Safety Report 8418152-5 (Version None)
Quarter: 2012Q2

REPORT INFORMATION
  Report Type: 
  Country: None (occurrence: None)
  Receive Date: 20120607
  Receipt Date: 20120530
  Transmission Date: 20120825
  Serious: Yes (Hospitalization)
  Sender: FDA-Public Use
  Company Number: US-BAYER-2012-003028

PATIENT
  Age: 34 Year
  Sex: Female
  Weight: 104.31 kg

DRUGS (13)
  1. OXYCODONE [Concomitant]
     Indication: PROCEDURAL PAIN
     Dosage: 1-2 TABLETS, Q4HR PRN
     Route: 048
     Dates: start: 20081118, end: 20081215
  2. SUDAFED 12 HOUR [Concomitant]
     Indication: NASOPHARYNGITIS
     Dosage: UNK
     Route: 048
     Dates: start: 20081215
  3. YAZ [Suspect]
     Indication: CONTRACEPTION
     Dosage: UNK
     Dates: start: 20080809, end: 20090101
  4. PROMETHAZINE [Concomitant]
     Indication: NAUSEA
     Dosage: 1 TABLET, EVERY 6 HOURS PRN
     Route: 048
     Dates: start: 20081118
  5. YAZ [Suspect]
     Dosage: UNK
     Dates: end: 20090331
  6. DROSPIRENONE AND ETHINYL ESTRADIOL [Suspect]
     Indication: CONTRACEPTION
     Dosage: UNK
     Dates: start: 20090529, end: 20090804
  7. VICODIN [Concomitant]
     Indication: PROCEDURAL PAIN
     Dosage: 1-2 TABLETS, Q4HR PRN
     Route: 048
     Dates: start: 20081118, end: 20081215
  8. CEPHALEXIN [Concomitant]
     Dosage: 500 MG, UNK
     Route: 048
     Dates: start: 20081124, end: 20081211
  9. NAPROXEN (ALEVE) [Concomitant]
     Indication: PAIN
     Dosage: UNK
     Route: 048
     Dates: start: 20081215
  10. IBUPROFEN [Concomitant]
     Dosage: 800 MG, UNK
     Route: 048
     Dates: start: 20080916
  11. YASMIN [Suspect]
     Indication: CONTRACEPTION
     Dosage: UNK
     Dates: start: 20020807, end: 20080828
  12. PHENTERMINE [Concomitant]
     Indication: WEIGHT DECREASED
     Dosage: UNK
     Route: 048
     Dates: start: 20081215
  13. FLUCONAZOLE [Concomitant]
     Dosage: 150 MG, UNK
     Route: 048
     Dates: start: 20080923

REACTIONS (8)
  - GENERAL PHYSICAL HEALTH DETERIORATION [None]
  - LIMB DISCOMFORT [None]
  - INJURY [None]
  - EMOTIONAL DISTRESS [None]
  - ANXIETY [None]
  - FEAR OF DEATH [None]
  - DEEP VEIN THROMBOSIS [None]
  - PAIN IN EXTREMITY [None]
